FAERS Safety Report 25680868 (Version 1)
Quarter: 2025Q3

REPORT INFORMATION
  Report Type: Spontaneous
  Country: PE (occurrence: PE)
  Receive Date: 20250814
  Receipt Date: 20250814
  Transmission Date: 20251021
  Serious: Yes (Hospitalization, Other)
  Sender: NOVITIUM PHARMA
  Company Number: PE-NOVITIUMPHARMA-2025PENVP02018

PATIENT
  Age: 24 Year
  Sex: Female

DRUGS (10)
  1. PYRAZINAMIDE [Suspect]
     Active Substance: PYRAZINAMIDE
     Indication: Pulmonary tuberculosis
     Dates: start: 202305, end: 202306
  2. ISONIAZID [Concomitant]
     Active Substance: ISONIAZID
     Indication: Pulmonary tuberculosis
     Dates: start: 202305, end: 202306
  3. RIFAMPIN [Concomitant]
     Active Substance: RIFAMPIN
     Indication: Pulmonary tuberculosis
     Dates: start: 202305, end: 202306
  4. ETHAMBUTOL [Concomitant]
     Active Substance: ETHAMBUTOL HYDROCHLORIDE
     Indication: Pulmonary tuberculosis
     Dates: start: 202305, end: 202306
  5. LEVOFLOXACIN [Concomitant]
     Active Substance: LEVOFLOXACIN
  6. LINEZOLID [Concomitant]
     Active Substance: LINEZOLID
  7. BEDAQUILINE [Concomitant]
     Active Substance: BEDAQUILINE
  8. AMIKACIN [Concomitant]
     Active Substance: AMIKACIN
  9. CLOFAZIMINE [Concomitant]
     Active Substance: CLOFAZIMINE
  10. CYCLOSERINE [Concomitant]
     Active Substance: CYCLOSERINE

REACTIONS (2)
  - Drug reaction with eosinophilia and systemic symptoms [Recovering/Resolving]
  - Stevens-Johnson syndrome [Recovering/Resolving]
